FAERS Safety Report 24762998 (Version 1)
Quarter: 2024Q4

REPORT INFORMATION
  Report Type: Spontaneous
  Country: US (occurrence: US)
  Receive Date: 20241222
  Receipt Date: 20241222
  Transmission Date: 20250114
  Serious: Yes (Other)
  Sender: AUROBINDO
  Company Number: US-MLMSERVICE-20241202-PI275928-00195-1

PATIENT
  Age: 5 Year
  Sex: Female

DRUGS (1)
  1. LEUPROLIDE [Suspect]
     Active Substance: LEUPROLIDE
     Indication: Precocious puberty
     Dosage: 7.5 MILLIGRAM MONTHLY
     Route: 065

REACTIONS (1)
  - Hypertension [Unknown]
